FAERS Safety Report 17950080 (Version 1)
Quarter: 2020Q2

REPORT INFORMATION
  Report Type: Spontaneous
  Country: US (occurrence: US)
  Receive Date: 20200626
  Receipt Date: 20200626
  Transmission Date: 20200714
  Serious: No
  Sender: FDA-Public Use
  Company Number: None

PATIENT
  Age: 72 Year
  Sex: Female
  Weight: 73.8 kg

DRUGS (3)
  1. LOSARTAN 25 MG TAB [Suspect]
     Active Substance: LOSARTAN POTASSIUM
     Indication: HYPERTENSION
     Dosage: ?          QUANTITY:1 TABLET(S);?
     Route: 048
     Dates: start: 20200624, end: 20200625
  2. ENZYME FORMULA [Concomitant]
  3. DAILY MULTIVITAMINS [Concomitant]

REACTIONS (12)
  - Reading disorder [None]
  - Confusional state [None]
  - Dyspnoea [None]
  - Pollakiuria [None]
  - Night sweats [None]
  - Muscle spasms [None]
  - Angioedema [None]
  - Palpitations [None]
  - Dysphagia [None]
  - Chest pain [None]
  - Chest discomfort [None]
  - Hunger [None]

NARRATIVE: CASE EVENT DATE: 20200624
